FAERS Safety Report 21056129 (Version 1)
Quarter: 2022Q3

REPORT INFORMATION
  Report Type: Report from Study
  Country: TN (occurrence: TN)
  Receive Date: 20220708
  Receipt Date: 20220708
  Transmission Date: 20221026
  Serious: Yes (Death, Other)
  Sender: FDA-Public Use
  Company Number: TN-SUN PHARMACEUTICAL INDUSTRIES LTD-2022RR-343681

PATIENT
  Age: 25 Year
  Sex: Male

DRUGS (4)
  1. CARBAMAZEPINE [Suspect]
     Active Substance: CARBAMAZEPINE
     Indication: Schizophrenia
     Dosage: UNK
     Route: 065
  2. HALOPERIDOL [Suspect]
     Active Substance: HALOPERIDOL
     Indication: Schizophrenia
     Dosage: 5 MILLIGRAM, DAILY
     Route: 065
  3. CLOZAPINE [Suspect]
     Active Substance: CLOZAPINE
     Indication: Schizophrenia
     Dosage: 400 MILLIGRAM, DAILY
     Route: 065
  4. CLONAZEPAM [Suspect]
     Active Substance: CLONAZEPAM
     Indication: Schizophrenia
     Dosage: 2 MILLIGRAM, DAILY
     Route: 065

REACTIONS (2)
  - Pulmonary embolism [Fatal]
  - Treatment noncompliance [Unknown]
